FAERS Safety Report 7050156-X (Version None)
Quarter: 2010Q4

REPORT INFORMATION
  Report Type: 
  Country: None (occurrence: None)
  Receive Date: 20101018
  Receipt Date: 20101007
  Transmission Date: 20110411
  Serious: No
  Sender: FDA-Public Use
  Company Number: AU-ASTRAZENECA-2010SE45036

PATIENT
  Age: 30 Year
  Sex: Female

DRUGS (3)
  1. SEROQUEL XR [Suspect]
     Indication: AFFECTIVE DISORDER
     Route: 048
     Dates: start: 20100801
  2. SEROQUEL XR [Suspect]
     Route: 048
     Dates: start: 20100921
  3. VALPROATE SODIUM [Suspect]
     Indication: BIPOLAR I DISORDER
     Route: 048
     Dates: start: 20100901, end: 20100901

REACTIONS (1)
  - NEUTROPENIA [None]
